FAERS Safety Report 10505761 (Version 4)
Quarter: 2014Q4

REPORT INFORMATION
  Report Type: Spontaneous
  Country: JP (occurrence: JP)
  Receive Date: 20141008
  Receipt Date: 20141208
  Transmission Date: 20150528
  Serious: Yes (Hospitalization, Other)
  Sender: FDA-Public Use
  Company Number: PHHY2014JP101581

PATIENT
  Age: 65 Year
  Sex: Female
  Weight: 67 kg

DRUGS (6)
  1. PACLITAXEL. [Suspect]
     Active Substance: PACLITAXEL
     Indication: BREAST CANCER
  2. ZOMETA [Suspect]
     Active Substance: ZOLEDRONIC ACID
     Indication: BREAST CANCER METASTATIC
  3. PACLITAXEL. [Suspect]
     Active Substance: PACLITAXEL
     Indication: METASTASES TO BONE
     Route: 065
     Dates: start: 200909
  4. FEMARA [Suspect]
     Active Substance: LETROZOLE
     Indication: INVASIVE DUCTAL BREAST CARCINOMA
  5. ZOMETA [Suspect]
     Active Substance: ZOLEDRONIC ACID
     Indication: METASTASES TO BONE
     Dosage: 4 MG, PER ADMINISTRATION
     Route: 042
     Dates: start: 20090316, end: 20100707
  6. FEMARA [Suspect]
     Active Substance: LETROZOLE
     Indication: BREAST CANCER
     Route: 048
     Dates: start: 200909

REACTIONS (19)
  - Osteonecrosis of jaw [Recovered/Resolved]
  - Osteonecrosis [Recovered/Resolved]
  - Fistula [Recovered/Resolved]
  - Metastases to lung [Unknown]
  - Pain [Recovered/Resolved]
  - Neoplasm [Unknown]
  - Impaired healing [Unknown]
  - Drug ineffective [Unknown]
  - Swelling [Recovered/Resolved]
  - Soft tissue infection [Recovered/Resolved]
  - Metastases to breast [Unknown]
  - Malignant neoplasm progression [Unknown]
  - Oral mucosal erythema [Recovered/Resolved]
  - Bone lesion [Recovered/Resolved]
  - Breast cancer [Unknown]
  - Exposed bone in jaw [Recovered/Resolved]
  - Osteomyelitis [Recovered/Resolved]
  - Gingivitis [Recovered/Resolved]
  - Metastases to liver [Unknown]

NARRATIVE: CASE EVENT DATE: 201003
